FAERS Safety Report 9260560 (Version 1)
Quarter: 2013Q2

REPORT INFORMATION
  Report Type: Spontaneous
  Country: US (occurrence: US)
  Receive Date: 20130429
  Receipt Date: 20130429
  Transmission Date: 20140414
  Serious: Yes (Hospitalization, Other)
  Sender: FDA-Public Use
  Company Number: US-SANOFI-AVENTIS-2013SA043148

PATIENT
  Age: 53 Year
  Sex: Female

DRUGS (6)
  1. LANTUS SOLOSTAR [Suspect]
     Indication: TYPE 2 DIABETES MELLITUS
     Dosage: THERAPY START DATE - 9 MONTHS AGO DOSE:30 UNIT(S)
     Route: 051
  2. SOLOSTAR [Suspect]
     Indication: TYPE 2 DIABETES MELLITUS
     Dosage: THERAPY START DATE - 9 MONTHS AGO
  3. NOVOLOG [Concomitant]
     Dosage: DOSE:6 UNIT(S)
  4. NEURONTIN [Concomitant]
  5. GLIPIZIDE [Concomitant]
  6. GLUCOPHAGE [Concomitant]

REACTIONS (8)
  - Neuropathy peripheral [Unknown]
  - Local swelling [Unknown]
  - Skin lesion [Unknown]
  - Pruritus [Unknown]
  - Blood glucose increased [Unknown]
  - Injection site reaction [Unknown]
  - Injection site pain [Unknown]
  - Injection site pruritus [Unknown]
